FAERS Safety Report 9500963 (Version 1)
Quarter: 2013Q3

REPORT INFORMATION
  Report Type: Spontaneous
  Country: IT (occurrence: IT)
  Receive Date: 20130905
  Receipt Date: 20130905
  Transmission Date: 20140515
  Serious: Yes (Other)
  Sender: FDA-Public Use
  Company Number: PHHY2013IT095126

PATIENT
  Sex: Female

DRUGS (7)
  1. ATENOLOL [Suspect]
     Dosage: 1 U, QD
     Route: 048
     Dates: start: 20120801, end: 20130731
  2. IRBESARTAN [Suspect]
     Dosage: 1 U, QD
     Route: 048
     Dates: start: 20130731, end: 20130731
  3. EUTIROX [Concomitant]
  4. CARDIOASPIRIN [Concomitant]
  5. ATORVASTATIN [Concomitant]
  6. PANTOPRAZOLE [Concomitant]
  7. TRAMADOL + PARACETAMOL [Concomitant]
     Dates: start: 20130730, end: 20130731

REACTIONS (2)
  - Bradycardia [Recovering/Resolving]
  - Presyncope [Recovering/Resolving]
